FAERS Safety Report 9908542 (Version 1)
Quarter: 2014Q1

REPORT INFORMATION
  Report Type: Spontaneous
  Country: US (occurrence: None)
  Receive Date: 20140214
  Receipt Date: 20140214
  Transmission Date: 20141002
  Serious: Yes (Hospitalization)
  Sender: FDA-Public Use
  Company Number: None

PATIENT
  Age: 86 Year
  Sex: Female
  Weight: 46.5 kg

DRUGS (12)
  1. COUMADIN [Suspect]
     Indication: ATRIAL FIBRILLATION
     Dosage: CHRONIC??4MG TTHS PO
     Route: 048
  2. COUMADIN [Suspect]
     Indication: ATRIAL FIBRILLATION
     Dosage: CHRONIC ?5MG MWFS PO
     Route: 048
  3. SYNTHROID [Concomitant]
  4. XALATAN [Concomitant]
  5. CA +VIT D [Concomitant]
  6. MVI [Concomitant]
  7. LASIX [Concomitant]
  8. OMEPRAZOLE [Concomitant]
  9. FLOUXETINE [Concomitant]
  10. LISINOPRIL [Concomitant]
  11. RESTASIS [Concomitant]
  12. COREG [Concomitant]

REACTIONS (2)
  - Fall [None]
  - Haemorrhage intracranial [None]
